FAERS Safety Report 6818483-6 (Version None)
Quarter: 2010Q3

REPORT INFORMATION
  Report Type: 
  Country: None (occurrence: None)
  Receive Date: 20100706
  Receipt Date: 20080414
  Transmission Date: 20110219
  Serious: No
  Sender: FDA-Public Use
  Company Number: US-PFIZER INC-2008033331

PATIENT
  Sex: Female

DRUGS (2)
  1. ZITHROMAX [Suspect]
     Indication: PNEUMONIA
     Route: 042
     Dates: start: 20080414
  2. ADVAIR DISKUS 100/50 [Concomitant]

REACTIONS (2)
  - ERYTHEMA [None]
  - INJECTION SITE EXTRAVASATION [None]
